FAERS Safety Report 17265549 (Version 1)
Quarter: 2020Q1

REPORT INFORMATION
  Report Type: Spontaneous
  Country: US (occurrence: US)
  Receive Date: 20200114
  Receipt Date: 20200114
  Transmission Date: 20200409
  Serious: No
  Sender: FDA-Public Use
  Company Number: US-ELI_LILLY_AND_COMPANY-US202001001715

PATIENT
  Age: 66 Year
  Sex: Female

DRUGS (3)
  1. BASAGLAR [Suspect]
     Active Substance: INSULIN GLARGINE
     Dosage: UNK UNK, UNKNOWN
     Route: 065
  2. BASAGLAR [Suspect]
     Active Substance: INSULIN GLARGINE
     Indication: PRODUCT USED FOR UNKNOWN INDICATION
     Dosage: UNK UNK, UNKNOWN
     Route: 065
  3. JANUVIA [Concomitant]
     Active Substance: SITAGLIPTIN PHOSPHATE
     Indication: PRODUCT USED FOR UNKNOWN INDICATION

REACTIONS (10)
  - Carpal tunnel syndrome [Unknown]
  - Blood glucose fluctuation [Recovering/Resolving]
  - Arthralgia [Recovering/Resolving]
  - Accidental underdose [Unknown]
  - Decreased appetite [Recovering/Resolving]
  - Back pain [Unknown]
  - Arthropathy [Recovering/Resolving]
  - Neuropathy peripheral [Recovering/Resolving]
  - Arthritis [Recovering/Resolving]
  - Eye disorder [Unknown]
